FAERS Safety Report 17048361 (Version 2)
Quarter: 2020Q1

REPORT INFORMATION
  Report Type: Spontaneous
  Country: US (occurrence: US)
  Receive Date: 20191119
  Receipt Date: 20200117
  Transmission Date: 20200409
  Serious: No
  Sender: FDA-Public Use
  Company Number: US-PFIZER INC-2019454219

PATIENT
  Age: 9 Month
  Sex: Female
  Weight: 9.27 kg

DRUGS (7)
  1. L-THYROXINE [LEVOTHYROXINE] [Concomitant]
     Active Substance: LEVOTHYROXINE
     Dosage: 0.025 MG, DAILY
     Route: 048
     Dates: start: 20181231
  2. HYDROCORTISONE. [Concomitant]
     Active Substance: HYDROCORTISONE
     Dosage: UNK
     Dates: start: 20181210
  3. GENOTROPIN MQ [Suspect]
     Active Substance: SOMATROPIN
     Dosage: UNK
     Dates: start: 201909, end: 20190923
  4. GENOTROPIN MQ [Suspect]
     Active Substance: SOMATROPIN
     Dosage: 0.2 MG, DAILY
  5. HYDROCORTISONE. [Concomitant]
     Active Substance: HYDROCORTISONE
     Dosage: 3.75 MG, DAILY (2.5 MG PO (ORAL) EVERY AM AND 1.25 MG EVERY PM)
     Route: 048
     Dates: start: 20181210
  6. RANITIDINE. [Concomitant]
     Active Substance: RANITIDINE
     Dosage: 37.5 MG, DAILY
     Route: 048
     Dates: start: 20190125
  7. L-THYROXINE [LEVOTHYROXINE] [Concomitant]
     Active Substance: LEVOTHYROXINE
     Dosage: UNK
     Dates: start: 20181231

REACTIONS (2)
  - Sluggishness [Recovered/Resolved]
  - Pyrexia [Recovered/Resolved]

NARRATIVE: CASE EVENT DATE: 20190902
